FAERS Safety Report 9392779 (Version 1)
Quarter: 2013Q3

REPORT INFORMATION
  Report Type: Spontaneous
  Country: US (occurrence: None)
  Receive Date: 20130708
  Receipt Date: 20130708
  Transmission Date: 20140515
  Serious: Yes (Hospitalization)
  Sender: FDA-Public Use
  Company Number: None

PATIENT
  Sex: Female
  Weight: 54.43 kg

DRUGS (1)
  1. CALCIUM CITRATE [Suspect]
     Indication: OSTEOPOROSIS
     Dates: start: 20130607, end: 20130611

REACTIONS (3)
  - Volvulus [None]
  - Product contamination microbial [None]
  - Product colour issue [None]
